FAERS Safety Report 14674738 (Version 3)
Quarter: 2018Q1

REPORT INFORMATION
  Report Type: Report from Study
  Country: KR (occurrence: KR)
  Receive Date: 20180323
  Receipt Date: 20180330
  Transmission Date: 20180509
  Serious: Yes (Death, Hospitalization)
  Sender: FDA-Public Use
  Company Number: KR-JNJFOC-20180326839

PATIENT
  Age: 70 Year
  Sex: Male
  Weight: 70 kg

DRUGS (19)
  1. ALLPARGIN [Concomitant]
     Indication: OSTEONECROSIS
     Dosage: 1 T
     Route: 048
     Dates: start: 20170925, end: 20170927
  2. VENITOL [Concomitant]
     Indication: OEDEMA
     Route: 048
     Dates: end: 20171024
  3. SPASMOLYT [Concomitant]
     Indication: PROSTATE CANCER
     Route: 048
     Dates: start: 20170921, end: 20171024
  4. VITIS VINIFERA (GRAPE) FLOWER EXTRACT [Concomitant]
     Active Substance: VITIS VINIFERA FLOWERING TOP
     Indication: OEDEMA
     Route: 048
     Dates: end: 20171024
  5. ZYTIGA [Suspect]
     Active Substance: ABIRATERONE ACETATE
     Indication: PROSTATE CANCER
     Route: 048
     Dates: start: 20170329, end: 20171024
  6. SOLONDO [Concomitant]
     Active Substance: PREDNISOLONE
     Indication: PROSTATE CANCER
     Route: 048
     Dates: start: 20170321, end: 20171024
  7. ELIQUIS [Concomitant]
     Active Substance: APIXABAN
     Indication: ARRHYTHMIA
     Route: 048
     Dates: end: 20171024
  8. CONCOR [Concomitant]
     Active Substance: BISOPROLOL FUMARATE
     Indication: ARRHYTHMIA
     Route: 048
     Dates: start: 20170816, end: 20171024
  9. LASTON [Concomitant]
     Indication: GASTROINTESTINAL DISORDER THERAPY
     Route: 048
     Dates: start: 20170925, end: 20170927
  10. ESOMEPRAZOLE MAGNESIUM. [Concomitant]
     Active Substance: ESOMEPRAZOLE MAGNESIUM
     Indication: GASTROINTESTINAL DISORDER THERAPY
     Route: 048
     Dates: end: 20171024
  11. ZOLADEX [Concomitant]
     Active Substance: GOSERELIN ACETATE
     Indication: PROSTATE CANCER
     Route: 058
     Dates: end: 20170921
  12. CYMBALTA [Concomitant]
     Active Substance: DULOXETINE HYDROCHLORIDE
     Indication: DEPRESSION
     Route: 048
     Dates: start: 20170921, end: 20171024
  13. GUGU [Concomitant]
     Indication: PROSTATE CANCER
     Route: 048
     Dates: start: 20170921, end: 20171024
  14. IMIPRAMINE [Concomitant]
     Active Substance: IMIPRAMINE
     Indication: DEPRESSION
     Route: 048
     Dates: start: 20170629, end: 20171024
  15. BETMIGA [Concomitant]
     Active Substance: MIRABEGRON
     Indication: PROSTATE CANCER
     Route: 048
     Dates: start: 20170525, end: 20171024
  16. JURNISTA [Concomitant]
     Active Substance: HYDROMORPHONE HYDROCHLORIDE
     Indication: OSTEONECROSIS
     Route: 048
     Dates: start: 20170928, end: 20171017
  17. DICAMAX [Concomitant]
     Indication: VITAMIN SUPPLEMENTATION
     Route: 048
     Dates: start: 20170622, end: 20171024
  18. CELEBREX [Concomitant]
     Active Substance: CELECOXIB
     Indication: OSTEONECROSIS
     Route: 048
     Dates: start: 20170928, end: 20171011
  19. TAMBOCOR [Concomitant]
     Active Substance: FLECAINIDE ACETATE
     Indication: ARRHYTHMIA
     Route: 048
     Dates: end: 20171024

REACTIONS (2)
  - Cardiac arrest [Fatal]
  - Osteonecrosis [Not Recovered/Not Resolved]

NARRATIVE: CASE EVENT DATE: 20170921
